FAERS Safety Report 16298454 (Version 1)
Quarter: 2019Q2

REPORT INFORMATION
  Report Type: Spontaneous
  Country: US (occurrence: US)
  Receive Date: 20190510
  Receipt Date: 20190510
  Transmission Date: 20190711
  Serious: Yes (Hospitalization)
  Sender: FDA-Public Use
  Company Number: US-ITALFARMACO SPA-2066870

PATIENT
  Age: 56 Year
  Sex: Female

DRUGS (1)
  1. TIGLUTIK [Suspect]
     Active Substance: RILUZOLE
     Indication: AMYOTROPHIC LATERAL SCLEROSIS

REACTIONS (3)
  - Lower limb fracture [Recovering/Resolving]
  - Product use issue [Unknown]
  - Off label use [Unknown]
